FAERS Safety Report 13788874 (Version 1)
Quarter: 2017Q3

REPORT INFORMATION
  Report Type: Spontaneous
  Country: US (occurrence: US)
  Receive Date: 20170725
  Receipt Date: 20170725
  Transmission Date: 20171127
  Serious: No
  Sender: FDA-Public Use
  Company Number: US-UNITED THERAPEUTICS-UNT-2016-019678

PATIENT
  Age: 52 Year
  Sex: Female
  Weight: 106.58 kg

DRUGS (7)
  1. REMODULIN [Suspect]
     Active Substance: TREPROSTINIL
     Dosage: 0.02925 ?G/KG, CONTINUING
     Route: 058
     Dates: start: 20161129
  2. REMODULIN [Suspect]
     Active Substance: TREPROSTINIL
     Dosage: 0.0045 ?G/KG, CONTINUING
     Route: 058
     Dates: start: 20161222
  3. REMODULIN [Suspect]
     Active Substance: TREPROSTINIL
     Dosage: 0.015 ?G/KG, CONTINUING
     Route: 058
  4. REMODULIN [Suspect]
     Active Substance: TREPROSTINIL
     Dosage: 0.01975 ?G/KG, CONTINUING
     Route: 058
  5. SILDENAFIL CITRATE. [Concomitant]
     Active Substance: SILDENAFIL CITRATE
     Indication: PRODUCT USED FOR UNKNOWN INDICATION
  6. REMODULIN [Suspect]
     Active Substance: TREPROSTINIL
     Indication: PULMONARY HYPERTENSION
     Dosage: 0.003 ?G/KG, CONTINUING
     Route: 058
     Dates: start: 20161221
  7. REMODULIN [Suspect]
     Active Substance: TREPROSTINIL
     Dosage: 0.03225 ?G/KG, CONTINUING
     Route: 058
     Dates: start: 20161222

REACTIONS (12)
  - Frequent bowel movements [Unknown]
  - Chest pain [Recovering/Resolving]
  - Asthenia [Unknown]
  - Pain in extremity [Unknown]
  - Hypoaesthesia [Unknown]
  - Dizziness [Recovering/Resolving]
  - Paraesthesia [Unknown]
  - Vomiting [Not Recovered/Not Resolved]
  - Pain in jaw [Unknown]
  - Diarrhoea [Not Recovered/Not Resolved]
  - Headache [Unknown]
  - Infusion site pain [Recovering/Resolving]

NARRATIVE: CASE EVENT DATE: 20161223
